FAERS Safety Report 9856645 (Version 2)
Quarter: 2014Q1

REPORT INFORMATION
  Report Type: Spontaneous
  Country: US (occurrence: US)
  Receive Date: 20140130
  Receipt Date: 20140130
  Transmission Date: 20141002
  Serious: Yes (Hospitalization)
  Sender: FDA-Public Use
  Company Number: US-GLAXOSMITHKLINE-A0850909A

PATIENT
  Sex: Male

DRUGS (7)
  1. AVANDIA [Suspect]
     Indication: DIABETES MELLITUS
     Dosage: 8MG PER DAY
     Route: 048
     Dates: start: 20050305, end: 2007
  2. BENICAR [Concomitant]
  3. METFORMIN [Concomitant]
  4. TOPROL XL [Concomitant]
  5. BETIMOL [Concomitant]
  6. XALATAN [Concomitant]
  7. HCTZ [Concomitant]

REACTIONS (7)
  - Cerebrovascular accident [Unknown]
  - Coronary artery disease [Unknown]
  - Coronary artery bypass [Unknown]
  - Transient ischaemic attack [Unknown]
  - Atrial fibrillation [Unknown]
  - Thrombosis [Unknown]
  - Cardiac disorder [Unknown]
